FAERS Safety Report 14441572 (Version 1)
Quarter: 2018Q1

REPORT INFORMATION
  Report Type: Spontaneous
  Country: US (occurrence: US)
  Receive Date: 20180125
  Receipt Date: 20180125
  Transmission Date: 20180509
  Serious: No
  Sender: FDA-Public Use
  Company Number: US-GLAXOSMITHKLINE-US2018009990

PATIENT

DRUGS (2)
  1. EXCEDRIN MIGRAINE [Suspect]
     Active Substance: ACETAMINOPHEN\ASPIRIN\CAFFEINE
     Indication: MIGRAINE
     Dosage: UNK
  2. CAFFEINE. [Suspect]
     Active Substance: CAFFEINE
     Indication: MIGRAINE
     Dosage: UNK

REACTIONS (1)
  - Drug ineffective [Unknown]
